FAERS Safety Report 18635801 (Version 3)
Quarter: 2022Q4

REPORT INFORMATION
  Report Type: Report from Study
  Country: US (occurrence: US)
  Receive Date: 20201218
  Receipt Date: 20221108
  Transmission Date: 20230113
  Serious: Yes (Other)
  Sender: FDA-Public Use
  Company Number: US-TAKEDA-US201827360

PATIENT
  Sex: Female

DRUGS (1)
  1. HUMAN IMMUNOGLOBULIN G [Suspect]
     Active Substance: HUMAN IMMUNOGLOBULIN G
     Indication: Primary immunodeficiency syndrome
     Route: 042

REACTIONS (7)
  - Sinusitis [Unknown]
  - Neuropathy peripheral [Unknown]
  - Breast cancer female [Recovering/Resolving]
  - Headache [Unknown]
  - Chills [Unknown]
  - Nausea [Unknown]
  - Fatigue [Unknown]
